FAERS Safety Report 23195726 (Version 1)
Quarter: 2023Q4

REPORT INFORMATION
  Report Type: Spontaneous
  Country: MX (occurrence: MX)
  Receive Date: 20231117
  Receipt Date: 20231117
  Transmission Date: 20240109
  Serious: Yes (Hospitalization)
  Sender: FDA-Public Use
  Company Number: MX-BRISTOL-MYERS SQUIBB COMPANY-2023-159017

PATIENT
  Age: 69 Year
  Sex: Male
  Weight: 64 kg

DRUGS (7)
  1. HYDROXYUREA [Suspect]
     Active Substance: HYDROXYUREA
     Indication: Essential thrombocythaemia
     Dosage: DAILY DOSE- 1000MG; 2 TABLETS?DAILY DOSE: 2 DOSAGE FORM
     Route: 048
     Dates: start: 20230810
  2. HYDROXYUREA [Suspect]
     Active Substance: HYDROXYUREA
     Indication: Essential thrombocythaemia
     Dosage: DAILY DOSE- 500MG?DAILY DOSE: 1 DOSAGE FORM
     Route: 048
     Dates: start: 20230810
  3. ELATEC [Concomitant]
     Indication: Product used for unknown indication
     Dosage: 1000, ONCE A DAY
  4. TAMSULOSIN [Concomitant]
     Active Substance: TAMSULOSIN
     Indication: Product used for unknown indication
     Dosage: DAILY DOSE: 0.4 MILLIGRAM
  5. ASPIRIN [Concomitant]
     Active Substance: ASPIRIN
     Indication: Product used for unknown indication
     Dosage: DAILY DOSE: 100 MILLIGRAM
  6. MONTELUKAST [Concomitant]
     Active Substance: MONTELUKAST SODIUM
     Indication: Product used for unknown indication
     Dosage: DAILY DOSE: 10 MILLIGRAM
  7. Histina [Concomitant]
     Indication: Product used for unknown indication
     Dosage: DAILY DOSE: 10 MILLIGRAM

REACTIONS (6)
  - Varicose vein [Unknown]
  - Platelet count increased [Unknown]
  - Burning sensation [Unknown]
  - Dysuria [Unknown]
  - Dyschezia [Unknown]
  - Gastritis [Unknown]

NARRATIVE: CASE EVENT DATE: 20230810
